FAERS Safety Report 8822033 (Version 2)
Quarter: 2012Q4

REPORT INFORMATION
  Report Type: 
  Country: FR (occurrence: FR)
  Receive Date: 20121003
  Receipt Date: 20121015
  Transmission Date: 20130627
  Serious: Yes (Death, Hospitalization, Other)
  Sender: FDA-Public Use
  Company Number: FR-AMGEN-FRASP2012061259

PATIENT
  Age: 65 Year
  Sex: Male

DRUGS (7)
  1. ENBREL [Suspect]
     Indication: RHEUMATOID ARTHRITIS
     Dosage: UNK
     Dates: start: 2008, end: 200904
  2. NOVATREX /00113801/ [Concomitant]
     Indication: RHEUMATOID ARTHRITIS
     Dosage: 10 mg, qwk
     Route: 048
     Dates: start: 2002, end: 20120601
  3. IMETH [Concomitant]
     Indication: RHEUMATOID ARTHRITIS
     Dosage: 15 mg, weekly
     Route: 048
     Dates: start: 20120601, end: 20120716
  4. CORTANCYL [Concomitant]
     Indication: RHEUMATOID ARTHRITIS
     Dosage: 10 mg, 1x/day
     Route: 048
     Dates: start: 2002
  5. HYDREA [Concomitant]
     Indication: MYELODYSPLASTIC SYNDROME
     Dosage: 500 mg, 1x/day
     Route: 048
     Dates: start: 20110721, end: 20120716
  6. MABTHERA [Concomitant]
     Indication: MYELODYSPLASTIC SYNDROME
     Dosage: 375 mg/m2: 4 perfusions/week
     Route: 042
     Dates: start: 20111129, end: 20111220
  7. AUGMENTIN                          /00756801/ [Concomitant]
     Indication: SINUSITIS
     Dosage: 1 g, 3x/day
     Route: 048
     Dates: start: 20120702, end: 20120707

REACTIONS (16)
  - Drug ineffective [Unknown]
  - Hyperthermia [Not Recovered/Not Resolved]
  - Cardiac arrest [Fatal]
  - Myocarditis [Fatal]
  - Cardiac disorder [Not Recovered/Not Resolved]
  - Cardiogenic shock [Unknown]
  - Pleural effusion [Unknown]
  - Respiratory distress [Unknown]
  - Haemoptysis [Unknown]
  - Hepatocellular injury [Unknown]
  - Cholestasis [Unknown]
  - Lymphopenia [Unknown]
  - Hyponatraemia [Unknown]
  - Morganella infection [Unknown]
  - Interstitial lung disease [Unknown]
  - Thrombocytopenia [Unknown]
